FAERS Safety Report 24636185 (Version 1)
Quarter: 2024Q4

REPORT INFORMATION
  Report Type: Spontaneous
  Country: US (occurrence: None)
  Receive Date: 20241118
  Receipt Date: 20241118
  Transmission Date: 20250115
  Serious: Yes (Death)
  Sender: Public
  Company Number: None

PATIENT
  Age: 81 Year
  Sex: Male

DRUGS (5)
  1. MYCOPHENOLIC ACID [Suspect]
     Active Substance: MYCOPHENOLIC ACID
  2. OMEPRAZOLE [Suspect]
     Active Substance: OMEPRAZOLE
  3. TACROLIMUS [Suspect]
     Active Substance: TACROLIMUS
  4. TACROLIMUS [Suspect]
     Active Substance: TACROLIMUS
  5. TAMSULOSIN [Suspect]
     Active Substance: TAMSULOSIN

REACTIONS (1)
  - Death [None]
